FAERS Safety Report 9474113 (Version 2)
Quarter: 2013Q3

REPORT INFORMATION
  Report Type: Spontaneous
  Country: FR (occurrence: FR)
  Receive Date: 20130823
  Receipt Date: 20130911
  Transmission Date: 20140515
  Serious: Yes (Life-Threatening)
  Sender: FDA-Public Use
  Company Number: FR-ABBOTT-13X-056-1136816-00

PATIENT
  Age: 73 Year
  Sex: Female

DRUGS (9)
  1. DEPAKOTE [Suspect]
     Indication: BIPOLAR DISORDER
     Route: 048
  2. KARDEGIC [Suspect]
     Indication: VASCULAR DEMENTIA
     Route: 048
     Dates: end: 20130608
  3. DOLIPRANE [Suspect]
     Indication: PAIN
     Route: 048
     Dates: start: 201302
  4. PREVISCAN [Suspect]
     Indication: PHLEBITIS
     Route: 048
     Dates: start: 201302, end: 20130608
  5. ZYPREXA [Suspect]
     Indication: BIPOLAR DISORDER
     Route: 048
  6. LUDIOMIL [Suspect]
     Indication: DEPRESSION
     Route: 048
  7. INEXIUM [Suspect]
     Indication: GASTROOESOPHAGEAL REFLUX DISEASE
     Route: 048
  8. TROSPIUM CHLORIDE [Suspect]
     Indication: URINARY INCONTINENCE
     Route: 048
  9. COZAAR [Suspect]
     Indication: HYPERTENSION
     Route: 048

REACTIONS (5)
  - Shock haemorrhagic [Recovered/Resolved with Sequelae]
  - International normalised ratio increased [Recovered/Resolved]
  - Anaemia [Not Recovered/Not Resolved]
  - Haematemesis [Recovered/Resolved]
  - Oesophageal ulcer [Recovered/Resolved]
